FAERS Safety Report 4688523-1 (Version None)
Quarter: 2005Q2

REPORT INFORMATION
  Report Type: 
  Country: None (occurrence: None)
  Receive Date: 20050609
  Receipt Date: 20050526
  Transmission Date: 20051028
  Serious: Yes (Other)
  Sender: FDA-Public Use
  Company Number: 214808

PATIENT
  Age: 69 Year
  Sex: Female
  Weight: 43 kg

DRUGS (12)
  1. RITUXAN [Suspect]
     Indication: NON-HODGKIN'S LYMPHOMA
     Dosage: 470 MG, INTRAVENOUS
     Route: 042
     Dates: start: 20011023, end: 20020109
  2. NOVANTRONE [Suspect]
     Indication: NON-HODGKIN'S LYMPHOMA
     Dosage: 10 MG, INTRAVENOUS
     Route: 042
     Dates: start: 20011025, end: 20020115
  3. PARAPLATIN [Suspect]
     Indication: NON-HODGKIN'S LYMPHOMA
     Dosage: 375 MG, INTRAVENOUS
     Route: 042
     Dates: start: 20011025, end: 20020115
  4. ETOPOSIDE [Suspect]
     Indication: NON-HODGKIN'S LYMPHOMA
     Dosage: 87.5 MG, INTRAVENOUS
     Route: 042
     Dates: start: 20011025, end: 20040115
  5. PREDNISOLONE ACETATE [Suspect]
     Indication: NON-HODGKIN'S LYMPHOMA
     Dosage: 15 MG, ORAL
     Route: 048
     Dates: start: 20011025, end: 20020115
  6. ZONISAMIDE (ZONISAMIDE) [Concomitant]
  7. MECOBALAMIN (MECOBALAMIN) [Concomitant]
  8. ADENOSINE TRIPHOSPHATE DISODIUM (ADENOSINE TRIPHOSPHATE DISODIUM) [Concomitant]
  9. SODIUM BICARBONATE IN PLASTIC CONTAINER [Concomitant]
  10. MAXIPIME [Concomitant]
  11. LOXONIN (LOXOPROFEN SODIUM) [Concomitant]
  12. POLARAMINE [Concomitant]

REACTIONS (3)
  - NEUTROPENIA [None]
  - PLATELET COUNT DECREASED [None]
  - WHITE BLOOD CELL COUNT DECREASED [None]
